FAERS Safety Report 5136199-1 (Version None)
Quarter: 2006Q4

REPORT INFORMATION
  Report Type: 
  Country: None (occurrence: None)
  Receive Date: 20061027
  Receipt Date: 20061013
  Transmission Date: 20070319
  Serious: Yes (Other)
  Sender: FDA-Public Use
  Company Number: PHBS2006FR16001

PATIENT
  Sex: Female

DRUGS (6)
  1. IMATINIB MESYLATE [Suspect]
     Indication: CHRONIC MYELOID LEUKAEMIA
     Dosage: 400 MG/D
     Dates: start: 20040301
  2. IMATINIB MESYLATE [Suspect]
     Dosage: 100 MG/D
     Dates: start: 20040720, end: 20040805
  3. ORAL CONTRACEPTIVE NOS [Concomitant]
  4. CORTICOSTEROIDS [Concomitant]
     Dosage: 1 MG/KG/DAY
  5. PREDNISONE TAB [Concomitant]
     Dosage: 30 MG/DAY
     Dates: start: 20040720
  6. PREDNISONE TAB [Concomitant]
     Dosage: 13-5 MG/DAY

REACTIONS (6)
  - ALANINE AMINOTRANSFERASE INCREASED [None]
  - ANTIBODY TEST ABNORMAL [None]
  - ASPARTATE AMINOTRANSFERASE INCREASED [None]
  - AUTOIMMUNE HEPATITIS [None]
  - HEPATIC NECROSIS [None]
  - IMMUNOGLOBULINS INCREASED [None]
